FAERS Safety Report 7987053-9 (Version None)
Quarter: 2011Q4

REPORT INFORMATION
  Report Type: 
  Country: None (occurrence: None)
  Receive Date: 20111216
  Receipt Date: 20110922
  Transmission Date: 20120403
  Serious: No
  Sender: FDA-Public Use
  Company Number: US-BRISTOL-MYERS SQUIBB COMPANY-16092066

PATIENT
  Age: 16 Year
  Sex: Male
  Weight: 91 kg

DRUGS (5)
  1. ABILIFY [Suspect]
     Indication: OPPOSITIONAL DEFIANT DISORDER
  2. ABILIFY [Suspect]
     Indication: ATTENTION DEFICIT/HYPERACTIVITY DISORDER
  3. PROZAC [Concomitant]
  4. ABILIFY [Suspect]
     Indication: DEPRESSION
  5. ABILIFY [Suspect]
     Indication: AUTISM SPECTRUM DISORDER

REACTIONS (2)
  - AGITATION [None]
  - RESTLESSNESS [None]
